FAERS Safety Report 25234680 (Version 3)
Quarter: 2025Q2

REPORT INFORMATION
  Report Type: Spontaneous
  Country: JP (occurrence: JP)
  Receive Date: 20250424
  Receipt Date: 20250623
  Transmission Date: 20250716
  Serious: Yes (Life-Threatening, Hospitalization)
  Sender: ORGANON
  Company Number: JP-ORGANON-O2504JPN002455

PATIENT
  Age: 59 Year
  Sex: Male
  Weight: 44.7 kg

DRUGS (5)
  1. VTAMA [Suspect]
     Active Substance: TAPINAROF
     Indication: Dermatitis atopic
     Dosage: 2 GRAM, QD
     Route: 061
     Dates: start: 20241121, end: 20241206
  2. DELGOCITINIB [Suspect]
     Active Substance: DELGOCITINIB
     Indication: Dermatitis atopic
     Dosage: 2 GRAM, QD
     Route: 003
     Dates: start: 20240613, end: 20241206
  3. RIFAMPIN [Concomitant]
     Active Substance: RIFAMPIN
     Indication: Pulmonary tuberculosis
     Dosage: 3 DOSAGE FORM, QD
     Route: 048
  4. ISCOTIN [Concomitant]
     Active Substance: ISONIAZID
     Indication: Pulmonary tuberculosis
     Dosage: 1 DOSAGE FORM, Q8H
     Route: 048
  5. ETHAMBUTOL HYDROCHLORIDE [Concomitant]
     Active Substance: ETHAMBUTOL HYDROCHLORIDE
     Indication: Pulmonary tuberculosis
     Dosage: 3 DOSAGE FORM, QD
     Route: 048

REACTIONS (1)
  - Erythema multiforme [Recovered/Resolved]

NARRATIVE: CASE EVENT DATE: 20241205
